FAERS Safety Report 24464679 (Version 1)
Quarter: 2024Q4

REPORT INFORMATION
  Report Type: Report from Study
  Country: US (occurrence: US)
  Receive Date: 20241018
  Receipt Date: 20241018
  Transmission Date: 20250115
  Serious: No
  Sender: ROCHE
  Company Number: US-ROCHE-3504612

PATIENT
  Age: 41 Year
  Sex: Female

DRUGS (9)
  1. XOLAIR [Suspect]
     Active Substance: OMALIZUMAB
     Indication: Idiopathic urticaria
     Route: 058
  2. XOLAIR [Suspect]
     Active Substance: OMALIZUMAB
     Route: 058
  3. ALPRAZOLAM [Concomitant]
     Active Substance: ALPRAZOLAM
  4. LEXAPRO [Concomitant]
     Active Substance: ESCITALOPRAM OXALATE
  5. PEPCID [Concomitant]
     Active Substance: FAMOTIDINE
  6. HYDROXYZINE [Concomitant]
     Active Substance: HYDROXYZINE HYDROCHLORIDE
  7. METHIMAZOLE [Concomitant]
     Active Substance: METHIMAZOLE
  8. PREDNISONE [Concomitant]
     Active Substance: PREDNISONE
  9. PROPRANOLOL [Concomitant]
     Active Substance: PROPRANOLOL HYDROCHLORIDE

REACTIONS (3)
  - Off label use [Unknown]
  - No adverse event [Unknown]
  - Drug ineffective [Unknown]
